FAERS Safety Report 9261443 (Version 2)
Quarter: 2013Q3

REPORT INFORMATION
  Report Type: Spontaneous
  Country: BR (occurrence: BR)
  Receive Date: 20130429
  Receipt Date: 20130702
  Transmission Date: 20140515
  Serious: Yes (Other)
  Sender: FDA-Public Use
  Company Number: BR-ASTRAZENECA-2013SE28059

PATIENT
  Age: 53 Year
  Sex: Female
  Weight: 85 kg

DRUGS (3)
  1. CRESTOR [Suspect]
     Indication: BLOOD CHOLESTEROL INCREASED
     Route: 048
     Dates: start: 2010
  2. PURAN T4 [Concomitant]
     Indication: HYPOTHYROIDISM
     Dosage: DAILY
  3. ZOLOFT [Concomitant]
     Dosage: DAILY

REACTIONS (1)
  - Paget^s disease of the vulva [Recovering/Resolving]
